FAERS Safety Report 6276433-8 (Version None)
Quarter: 2009Q3

REPORT INFORMATION
  Report Type: 
  Country: None (occurrence: None)
  Receive Date: 20090720
  Receipt Date: 20090703
  Transmission Date: 20100115
  Serious: Yes (Life-Threatening, Hospitalization)
  Sender: FDA-Public Use
  Company Number: DSA_33654_2009

PATIENT
  Sex: Male

DRUGS (12)
  1. DILTIAZEM HCL [Suspect]
     Indication: HYPERTENSION
     Dosage: (100 MG QD ORAL)
     Route: 048
     Dates: start: 20090406, end: 20090408
  2. OLMESARTAN MEDOXOMIL [Suspect]
     Indication: DRUG USE FOR UNKNOWN INDICATION
     Dosage: (40 MG QD ORAL)
     Route: 048
     Dates: start: 20061218
  3. CALBLOCK (CALBLOCK - AZELNIDIPINE) (NOT SPECIFIED) [Suspect]
     Indication: DRUG USE FOR UNKNOWN INDICATION
     Dosage: (16 MG QD ORAL)
     Route: 048
     Dates: start: 20061218
  4. TAKEPRON (TAKEPRON - LANSOPRAZOLE) (NOT SPECIFIED) [Suspect]
     Indication: DRUG USE FOR UNKNOWN INDICATION
     Dosage: (15 MG QD ORAL)
     Route: 048
     Dates: start: 20061218
  5. AMARYL [Suspect]
     Indication: DIABETES MELLITUS
     Dosage: ( 4 MG QD ORAL)
     Route: 048
     Dates: start: 20061218
  6. ATELEC (ATELEC - CILNIDIPINE) (NOT SPECIFIED) [Suspect]
     Indication: DRUG USE FOR UNKNOWN INDICATION
     Dosage: (20 MG QD ORAL)
     Route: 048
     Dates: start: 20070115
  7. BASEN (BASEN - VOGLIBOSE) (NOT SPECIFIED) [Suspect]
     Indication: DRUG USE FOR UNKNOWN INDICATION
     Dosage: (0.3 MG QD ORAL)
     Route: 048
     Dates: start: 20070730
  8. CARVEDILOL [Suspect]
     Indication: DRUG USE FOR UNKNOWN INDICATION
     Dosage: (20 MG QD ORAL), (30 MG QD ORAL)
     Route: 048
     Dates: start: 20080922, end: 20090408
  9. CARVEDILOL [Suspect]
     Indication: DRUG USE FOR UNKNOWN INDICATION
     Dosage: (20 MG QD ORAL), (30 MG QD ORAL)
     Route: 048
     Dates: start: 20080512
  10. ACTOS [Suspect]
     Indication: DRUG USE FOR UNKNOWN INDICATION
     Dosage: (30 MG QD ORAL)
     Route: 048
     Dates: start: 20080922
  11. INDAPAMIDE [Suspect]
     Indication: DRUG USE FOR UNKNOWN INDICATION
     Dosage: ( 4 MG QD ORAL)
     Route: 048
     Dates: start: 20081208
  12. RAMOSETRON HYDROCHLORIDE (IRRIBOW-RAMOSETRON HYDROCHLORIDE) [Suspect]
     Indication: DRUG USE FOR UNKNOWN INDICATION
     Dosage: (5 UG QD ORAL)
     Route: 048
     Dates: start: 20090216

REACTIONS (8)
  - BLOOD PRESSURE DECREASED [None]
  - BRADYCARDIA [None]
  - BUNDLE BRANCH BLOCK RIGHT [None]
  - CHEST PAIN [None]
  - CIRCULATORY COLLAPSE [None]
  - DEPRESSED LEVEL OF CONSCIOUSNESS [None]
  - DIZZINESS [None]
  - HYPERKALAEMIA [None]
